FAERS Safety Report 16916374 (Version 1)
Quarter: 2019Q4

REPORT INFORMATION
  Report Type: Spontaneous
  Country: CR (occurrence: CR)
  Receive Date: 20191014
  Receipt Date: 20191014
  Transmission Date: 20200122
  Serious: Yes (Other)
  Sender: FDA-Public Use
  Company Number: CR-ELI_LILLY_AND_COMPANY-CR201910005258

PATIENT
  Age: 46 Year
  Sex: Female

DRUGS (6)
  1. ALPRAZOLAM 1 A PHARMA [Concomitant]
     Indication: PRODUCT USED FOR UNKNOWN INDICATION
  2. ZYPREXA [Suspect]
     Active Substance: OLANZAPINE
     Indication: DEPRESSION
     Dosage: 1 DOSAGE FORM, OTHER ONLY
     Route: 065
     Dates: start: 20191008
  3. ZYPREXA [Suspect]
     Active Substance: OLANZAPINE
     Indication: INTENTIONAL SELF-INJURY
  4. ZYPREXA [Suspect]
     Active Substance: OLANZAPINE
     Indication: SLEEP DISORDER
  5. CLONAZEPAM. [Concomitant]
     Active Substance: CLONAZEPAM
     Indication: PRODUCT USED FOR UNKNOWN INDICATION
  6. DESVENLAFAXINE. [Concomitant]
     Active Substance: DESVENLAFAXINE
     Indication: PRODUCT USED FOR UNKNOWN INDICATION

REACTIONS (6)
  - Dizziness [Recovering/Resolving]
  - Hyperhidrosis [Recovering/Resolving]
  - Nausea [Recovering/Resolving]
  - Asthenia [Recovering/Resolving]
  - Psychotic symptom [Recovering/Resolving]
  - Genito-pelvic pain/penetration disorder [Recovering/Resolving]

NARRATIVE: CASE EVENT DATE: 20191008
